FAERS Safety Report 5160460-8 (Version None)
Quarter: 2006Q4

REPORT INFORMATION
  Report Type: 
  Country: None (occurrence: None)
  Receive Date: 20061121
  Receipt Date: 20061107
  Transmission Date: 20070319
  Serious: Yes (Hospitalization)
  Sender: FDA-Public Use
  Company Number: 25956NR

PATIENT
  Age: 47 Year
  Sex: Male
  Weight: 129.2752 kg

DRUGS (13)
  1. NIASPAN [Suspect]
     Indication: HIGH DENSITY LIPOPROTEIN DECREASED
     Dosage: 2000 MG QHS PO
     Route: 048
     Dates: start: 20061009, end: 20061019
  2. OXYBUTYNIN [Concomitant]
  3. ASPIRIN [Concomitant]
  4. ALLOPURINOL SODIUM [Concomitant]
  5. HYDROCHLOROTHIAZIDE [Concomitant]
  6. LOVASTATIN [Concomitant]
  7. IMIPRAMINE [Concomitant]
  8. GABAPENTIN [Concomitant]
  9. IBUPROFEN [Concomitant]
  10. PRILOSEC [Concomitant]
  11. LORATADINE [Concomitant]
  12. PERCOCET [Concomitant]
  13. ULTRAM [Concomitant]

REACTIONS (2)
  - ARTHRALGIA [None]
  - PAIN [None]
